FAERS Safety Report 9690741 (Version 2)
Quarter: 2013Q4

REPORT INFORMATION
  Report Type: Report from Study
  Country: US (occurrence: US)
  Receive Date: 20131115
  Receipt Date: 20131205
  Transmission Date: 20140711
  Serious: Yes (Life-Threatening)
  Sender: FDA-Public Use
  Company Number: US-JNJFOC-20131108381

PATIENT
  Age: 17 Year
  Sex: Female

DRUGS (6)
  1. REMICADE [Suspect]
     Indication: INFLAMMATORY BOWEL DISEASE
     Route: 042
     Dates: start: 201310
  2. REMICADE [Suspect]
     Indication: INFLAMMATORY BOWEL DISEASE
     Route: 042
     Dates: start: 20130926
  3. REMICADE [Suspect]
     Indication: INFLAMMATORY BOWEL DISEASE
     Route: 042
     Dates: start: 20130912
  4. BENADRYL [Concomitant]
     Indication: PREMEDICATION
     Route: 065
     Dates: start: 201310
  5. 5-ASA [Concomitant]
     Route: 048
  6. 6-MERCAPTOPURINE [Concomitant]
     Route: 065

REACTIONS (1)
  - Infusion related reaction [Recovered/Resolved]
